FAERS Safety Report 5028698-8 (Version None)
Quarter: 2006Q2

REPORT INFORMATION
  Report Type: 
  Country: None (occurrence: None)
  Receive Date: 20060619
  Receipt Date: 20060608
  Transmission Date: 20061013
  Serious: Yes (Other)
  Sender: FDA-Public Use
  Company Number: US-JNJFOC-20060602495

PATIENT
  Sex: Female
  Weight: 63.5 kg

DRUGS (2)
  1. ELMIRON [Suspect]
     Indication: CYSTITIS INTERSTITIAL
     Route: 048
  2. RELPAX [Concomitant]
     Indication: MIGRAINE
     Route: 048

REACTIONS (1)
  - KIDNEY INFECTION [None]
